FAERS Safety Report 7046840-4 (Version None)
Quarter: 2010Q3

REPORT INFORMATION
  Report Type: 
  Country: None (occurrence: None)
  Receive Date: 20100902
  Receipt Date: 20091008
  Transmission Date: 20110219
  Serious: Yes (Other)
  Sender: FDA-Public Use
  Company Number: 09-013

PATIENT

DRUGS (6)
  1. PMG HUC GRASS MIX [Suspect]
     Indication: HYPERSENSITIVITY
     Dosage: SUBCUTANEOUS
     Route: 058
     Dates: start: 20090701, end: 20091001
  2. PMG HUC MITE MIX [Suspect]
     Indication: HYPERSENSITIVITY
     Dosage: SUBCUTANEOUS
     Route: 058
     Dates: start: 20090701, end: 20091001
  3. PMG HUC GRASS MIX [Suspect]
  4. PMG HUC GRASS MIX [Suspect]
  5. PMG HUC MITE MIX [Suspect]
  6. PMG HUC MITE MIX [Suspect]

REACTIONS (2)
  - ERYTHEMA [None]
  - SWELLING [None]
